FAERS Safety Report 17889488 (Version 13)
Quarter: 2020Q4

REPORT INFORMATION
  Report Type: Report from Study
  Country: CL (occurrence: CL)
  Receive Date: 20200612
  Receipt Date: 20201107
  Transmission Date: 20210113
  Serious: Yes (Life-Threatening, Hospitalization, Other)
  Sender: FDA-Public Use
  Company Number: NVSC2020CL163938

PATIENT
  Age: 76 Year
  Sex: Female
  Weight: 46 kg

DRUGS (12)
  1. KISQALI [Suspect]
     Active Substance: RIBOCICLIB
     Indication: BREAST CANCER
     Dosage: 600 MG (FOR 21 DAYS WITH 7 RESTING DAYS)
     Route: 048
     Dates: start: 20200521
  2. ZOMETA [Suspect]
     Active Substance: ZOLEDRONIC ACID
     Indication: PRODUCT USED FOR UNKNOWN INDICATION
     Dosage: UNK
     Route: 065
  3. KISQALI [Suspect]
     Active Substance: RIBOCICLIB
     Dosage: 200 MG, QD (FOR 21 DAYS WITH 7 RESTING DAYS)
     Route: 048
     Dates: start: 20200521
  4. KISQALI [Suspect]
     Active Substance: RIBOCICLIB
     Dosage: 200 MG, QD
     Route: 048
     Dates: start: 20200720
  5. XGEVA [Concomitant]
     Active Substance: DENOSUMAB
     Indication: PRODUCT USED FOR UNKNOWN INDICATION
     Dosage: UNK
     Route: 065
  6. LETROZOLE. [Suspect]
     Active Substance: LETROZOLE
     Indication: PRODUCT USED FOR UNKNOWN INDICATION
     Dosage: 2.5 MG
     Route: 048
     Dates: end: 20200613
  7. FULVESTRANT. [Suspect]
     Active Substance: FULVESTRANT
     Indication: PRODUCT USED FOR UNKNOWN INDICATION
     Dosage: UNK
     Route: 065
  8. ECHINACEA [Concomitant]
     Active Substance: ECHINACEA, UNSPECIFIED
     Indication: PRODUCT USED FOR UNKNOWN INDICATION
     Dosage: UNK
     Route: 065
  9. ELCAL D [Concomitant]
     Active Substance: CALCIUM CARBONATE\CHOLECALCIFEROL
     Indication: PRODUCT USED FOR UNKNOWN INDICATION
     Dosage: UNK
     Route: 065
  10. KISQALI [Suspect]
     Active Substance: RIBOCICLIB
     Dosage: 600 MG
     Route: 048
     Dates: end: 20200609
  11. TOL-12 [Concomitant]
     Indication: PRODUCT USED FOR UNKNOWN INDICATION
     Dosage: UNK
     Route: 065
  12. PROPOLIS [Concomitant]
     Active Substance: PROPOLIS WAX
     Indication: PRODUCT USED FOR UNKNOWN INDICATION
     Dosage: UNK
     Route: 065

REACTIONS (42)
  - Platelet count decreased [Unknown]
  - Rectal haemorrhage [Unknown]
  - Gait disturbance [Unknown]
  - Electrocardiogram repolarisation abnormality [Unknown]
  - Electrocardiogram ST-T segment abnormal [Unknown]
  - Blood glucose increased [Unknown]
  - Blood uric acid increased [Unknown]
  - Blood electrolytes increased [Unknown]
  - Feeling abnormal [Not Recovered/Not Resolved]
  - Cystitis [Unknown]
  - Fibrin D dimer increased [Unknown]
  - Blood calcium decreased [Unknown]
  - White blood cell count decreased [Unknown]
  - Electrocardiogram PR shortened [Unknown]
  - Poikilocytosis [Unknown]
  - Rouleaux formation [Unknown]
  - Lymphocyte count decreased [Unknown]
  - Red blood cell count decreased [Unknown]
  - Metastases to bladder [Unknown]
  - Haemoglobin decreased [Unknown]
  - Atrioventricular conduction time shortened [Unknown]
  - Elliptocytosis [Unknown]
  - Protein total decreased [Unknown]
  - Blood urea increased [Unknown]
  - Mean cell volume [Unknown]
  - Macrocytosis [Unknown]
  - Laboratory test abnormal [Unknown]
  - Anaemia [Recovering/Resolving]
  - Rectal lesion [Not Recovered/Not Resolved]
  - Red cell distribution width increased [Unknown]
  - Anisocytosis [Unknown]
  - Neutrophil count abnormal [Unknown]
  - Mean cell haemoglobin increased [Unknown]
  - Blood albumin decreased [Unknown]
  - Fatigue [Not Recovered/Not Resolved]
  - Haematocrit decreased [Unknown]
  - Haemorrhage [Not Recovered/Not Resolved]
  - Blood urine present [Unknown]
  - Neutrophil count decreased [Unknown]
  - Erythroblast count [Unknown]
  - Excessive granulation tissue [Unknown]
  - Red blood cell sedimentation rate increased [Unknown]

NARRATIVE: CASE EVENT DATE: 2020
